FAERS Safety Report 25023221 (Version 1)
Quarter: 2025Q1

REPORT INFORMATION
  Report Type: Spontaneous
  Country: US (occurrence: None)
  Receive Date: 20250227
  Receipt Date: 20250227
  Transmission Date: 20250408
  Serious: No
  Sender: FDA-CTU
  Company Number: None

PATIENT
  Age: 23 Year
  Sex: Male
  Weight: 79 kg

DRUGS (1)
  1. UZEDY [Suspect]
     Active Substance: RISPERIDONE
     Dosage: OTHER FREQUENCY : EVERY OTHER MONTH;?
     Route: 058

REACTIONS (1)
  - Injection site abscess [None]

NARRATIVE: CASE EVENT DATE: 20250226
